FAERS Safety Report 11379211 (Version 1)
Quarter: 2015Q3

REPORT INFORMATION
  Report Type: Spontaneous
  Country: US (occurrence: None)
  Receive Date: 20150813
  Receipt Date: 20150813
  Transmission Date: 20151125
  Serious: No
  Sender: FDA-Public Use
  Company Number: None

PATIENT
  Age: 82 Year
  Sex: Female
  Weight: 54.43 kg

DRUGS (5)
  1. VIT D2 ERGOCALCITEROL 50,000 IU CAPSULES BRECKEMRIDGE [Suspect]
     Active Substance: ERGOCALCIFEROL
     Indication: VITAMIN D DECREASED
     Dosage: 50,000/CAP?8 CAPS?1 Q WEEL?BY MOUTH?THERAPY?8/4/2015-8/4/2081
     Route: 048
     Dates: start: 20150804
  2. SINGULAIR [Concomitant]
     Active Substance: MONTELUKAST SODIUM
  3. NAPROXEN. [Concomitant]
     Active Substance: NAPROXEN
  4. CALCIUM SUPPLEMENT [Concomitant]
     Active Substance: CALCIUM
  5. METHYLTREXATE [Concomitant]

REACTIONS (2)
  - Disorientation [None]
  - Road traffic accident [None]

NARRATIVE: CASE EVENT DATE: 20150804
